FAERS Safety Report 15250315 (Version 1)
Quarter: 2018Q3

REPORT INFORMATION
  Report Type: Spontaneous
  Country: US (occurrence: US)
  Receive Date: 20180716
  Receipt Date: 20180716
  Transmission Date: 20181010
  Serious: Yes (Death, Hospitalization)
  Sender: FDA-Public Use
  Company Number: None

PATIENT
  Age: 25 Year
  Sex: Male
  Weight: 86.4 kg

DRUGS (2)
  1. XYREM [Suspect]
     Active Substance: SODIUM OXYBATE
     Indication: NARCOLEPSY
     Dosage: ?          QUANTITY:5 ML?DOSE OF 2.5 GMS;OTHER FREQUENCY:2 TIMES PER NIGHT;?
     Route: 048
     Dates: start: 20150101, end: 20180621
  2. MELATONIN [Concomitant]
     Active Substance: MELATONIN

REACTIONS (10)
  - Hallucination, auditory [None]
  - Drug resistance [None]
  - Asphyxia [None]
  - Emotional distress [None]
  - Abnormal dreams [None]
  - Somnolence [None]
  - Aggression [None]
  - Psychotic disorder [None]
  - Mental disorder [None]
  - Completed suicide [None]

NARRATIVE: CASE EVENT DATE: 20180619
